FAERS Safety Report 8041893 (Version 3)
Quarter: 2012Q4

REPORT INFORMATION
  Report Type: Report from Study
  Country: JP (occurrence: JP)
  Receive Date: 20110718
  Receipt Date: 20120905
  Transmission Date: 20130627
  Serious: Yes (Life-Threatening, Hospitalization)
  Sender: FDA-Public Use
  Company Number: JP-GILEAD-E2B_00001395

PATIENT
  Age: 60 Year
  Sex: Female

DRUGS (18)
  1. AMBRISENTAN [Suspect]
     Indication: PULMONARY ARTERIAL HYPERTENSION
     Dosage: 2.5 mg, QD
     Route: 048
     Dates: start: 20110517, end: 20110523
  2. AMBRISENTAN [Suspect]
     Indication: COLLAGEN DISORDER
  3. CICLOSPORIN [Concomitant]
     Indication: INTERSTITIAL LUNG DISEASE
     Route: 065
  4. WARFARIN [Concomitant]
  5. GASMOTIN [Concomitant]
  6. MUCOSTA [Concomitant]
  7. AMINO ACID [Concomitant]
  8. CALTAN [Concomitant]
  9. AMOBAN [Concomitant]
  10. PAXIL [Concomitant]
  11. FUNGIZONE [Concomitant]
  12. PARIET [Concomitant]
  13. ALFAROL [Concomitant]
  14. BAKTAR [Concomitant]
  15. MYSLEE [Concomitant]
  16. ALDACTONE A [Concomitant]
  17. FUROSEMIDE [Concomitant]
  18. MAGLAX [Concomitant]

REACTIONS (2)
  - Respiratory failure [Unknown]
  - Interstitial lung disease [Recovering/Resolving]
